FAERS Safety Report 4622407-X (Version None)
Quarter: 2005Q1

REPORT INFORMATION
  Report Type: 
  Country: None (occurrence: None)
  Receive Date: 20050317
  Receipt Date: 20040203
  Transmission Date: 20050727
  Serious: Yes (Other)
  Sender: FDA-Public Use
  Company Number: PHEH2004US01594

PATIENT
  Age: 44 Year
  Sex: Male

DRUGS (2)
  1. TRILEPTAL [Suspect]
     Dosage: ORAL
     Route: 048
  2. LAMICTAL [Concomitant]

REACTIONS (1)
  - HYPONATRAEMIA [None]
